FAERS Safety Report 4284119-4 (Version None)
Quarter: 2004Q1

REPORT INFORMATION
  Report Type: 
  Country: None (occurrence: None)
  Receive Date: 20040130
  Receipt Date: 20040116
  Transmission Date: 20041129
  Serious: Yes (Other)
  Sender: FDA-Public Use
  Company Number: DE-SHR-03-005248

PATIENT
  Age: 23 Year
  Sex: Female
  Weight: 68 kg

DRUGS (1)
  1. YASMIN [Suspect]
     Indication: ORAL CONTRACEPTION
     Dosage: ORAL
     Route: 048
     Dates: start: 20020101, end: 20030330

REACTIONS (5)
  - COMPLICATIONS OF MATERNAL EXPOSURE TO THERAPEUTIC DRUGS [None]
  - MATERNAL DRUGS AFFECTING FOETUS [None]
  - MEDICATION ERROR [None]
  - PREGNANCY ON ORAL CONTRACEPTIVE [None]
  - PREMATURE BABY [None]
